FAERS Safety Report 5932716-X (Version None)
Quarter: 2008Q4

REPORT INFORMATION
  Report Type: 
  Country: None (occurrence: None)
  Receive Date: 20081027
  Receipt Date: 20081027
  Transmission Date: 20090506
  Serious: Yes (Disabling, Other)
  Sender: FDA-Public Use
  Company Number: None

PATIENT
  Age: 30 Year
  Sex: Female
  Weight: 69.4003 kg

DRUGS (1)
  1. ADIPEX-P [Suspect]
     Indication: WEIGHT CONTROL
     Dosage: ONCE DAILY PO
     Route: 048
     Dates: start: 20071112, end: 20080610

REACTIONS (3)
  - ACTIVITIES OF DAILY LIVING IMPAIRED [None]
  - ANXIETY [None]
  - PANIC ATTACK [None]
